FAERS Safety Report 9021621 (Version 1)
Quarter: 2013Q1

REPORT INFORMATION
  Report Type: Spontaneous
  Country: US (occurrence: US)
  Receive Date: 20130119
  Receipt Date: 20130119
  Transmission Date: 20140127
  Serious: No
  Sender: FDA-Public Use
  Company Number: US-ALLERGAN-0100013US

PATIENT
  Sex: Female

DRUGS (1)
  1. BOTOX? [Suspect]
     Indication: PROGRESSIVE SUPRANUCLEAR PALSY
     Dosage: UNK
     Dates: start: 201112, end: 201112

REACTIONS (4)
  - Neck pain [Unknown]
  - Dysphagia [Unknown]
  - Dry mouth [Unknown]
  - Off label use [Unknown]
